FAERS Safety Report 11282959 (Version 1)
Quarter: 2015Q3

REPORT INFORMATION
  Report Type: Spontaneous
  Country: DK (occurrence: None)
  Receive Date: 20150716
  Receipt Date: 20150716
  Transmission Date: 20151125
  Serious: Yes (Other)
  Sender: FDA-Public Use
  Company Number: 2015JUB00216

PATIENT
  Age: 53 Year
  Sex: Female

DRUGS (3)
  1. METHYLPREDNISOLONE. [Suspect]
     Active Substance: METHYLPREDNISOLONE
     Indication: CHRONIC OBSTRUCTIVE PULMONARY DISEASE
     Route: 042
  2. UNSPECIFIED BRONCHOLYTICS (UNSPECIFIED BRONCHOLYTICS) [Concomitant]
  3. UNSPECIFIED SEDATIVES [Concomitant]

REACTIONS (2)
  - Quadriplegia [None]
  - Myopathy [None]
